FAERS Safety Report 9862106 (Version 1)
Quarter: 2014Q1

REPORT INFORMATION
  Report Type: Spontaneous
  Country: US (occurrence: US)
  Receive Date: 20140203
  Receipt Date: 20140203
  Transmission Date: 20141002
  Serious: Yes (Hospitalization)
  Sender: FDA-Public Use
  Company Number: US-MYLANLABS-2014S1001464

PATIENT
  Age: 37 Year
  Sex: Female

DRUGS (1)
  1. VERAPAMIL [Suspect]
     Indication: OVERDOSE
     Dosage: 5 X TABLETS
     Route: 048

REACTIONS (2)
  - Overdose [Recovered/Resolved]
  - Hypocalcaemia [Recovered/Resolved]
